FAERS Safety Report 4332763-8 (Version None)
Quarter: 2004Q1

REPORT INFORMATION
  Report Type: 
  Country: None (occurrence: None)
  Receive Date: 20040330
  Receipt Date: 20040317
  Transmission Date: 20041129
  Serious: Yes (Hospitalization)
  Sender: FDA-Public Use
  Company Number: 04P-163-0253824-00

PATIENT
  Age: 51 Year
  Sex: Female
  Weight: 140.6151 kg

DRUGS (12)
  1. HUMIRA [Suspect]
     Indication: RHEUMATOID ARTHRITIS
     Dosage: 40 MG, 1 IN 2 WK, SUBCUTANEOUS
     Route: 058
     Dates: start: 20031001
  2. LEFLUNOMIDE [Concomitant]
  3. ESOMEPRAZOLE [Concomitant]
  4. HYDROXYCHLOROQUINE PHOSPHATE [Concomitant]
  5. TRAMADOL HCL [Concomitant]
  6. FLUOXETINE HCL [Concomitant]
  7. CELECOXIB [Concomitant]
  8. VALSARTAN [Concomitant]
  9. ALPRAZOLAM [Concomitant]
  10. OXYCODONE AND ACETAMINOPHEN [Concomitant]
  11. LEKOVIT CA [Concomitant]
  12. FEXOFENADINE HYDROCHLORIDE [Concomitant]

REACTIONS (4)
  - BACK PAIN [None]
  - COMPRESSION FRACTURE [None]
  - RASH [None]
  - URTICARIA [None]
